FAERS Safety Report 17448508 (Version 1)
Quarter: 2020Q1

REPORT INFORMATION
  Report Type: Spontaneous
  Country: FR (occurrence: FR)
  Receive Date: 20200223
  Receipt Date: 20200223
  Transmission Date: 20200409
  Serious: Yes (Hospitalization)
  Sender: FDA-Public Use
  Company Number: FR-AXELLIA-002989

PATIENT
  Age: 37 Year
  Sex: Female
  Weight: 50 kg

DRUGS (17)
  1. KETOPROFEN. [Suspect]
     Active Substance: KETOPROFEN
     Indication: PRODUCT USED FOR UNKNOWN INDICATION
     Route: 048
     Dates: start: 20191215
  2. PREGABALIN. [Concomitant]
     Active Substance: PREGABALIN
     Route: 048
  3. GENTAMICIN. [Suspect]
     Active Substance: GENTAMICIN
     Indication: DERMO-HYPODERMITIS
     Dosage: VOIR COMMENTAIRE
     Route: 042
     Dates: start: 20191215, end: 20191216
  4. TAZOCILLINE [Suspect]
     Active Substance: PIPERACILLIN SODIUM\TAZOBACTAM SODIUM
     Indication: DERMO-HYPODERMITIS
     Route: 042
     Dates: start: 20191215, end: 20191218
  5. ONDANSETRON [Concomitant]
     Active Substance: ONDANSETRON
     Route: 042
  6. LOVENOX [Concomitant]
     Active Substance: ENOXAPARIN SODIUM
     Dosage: STRENGTH 4 000 UI ANTI-XA / 0.4 ML
     Route: 058
     Dates: start: 20191216
  7. VANCOMYCIN [Suspect]
     Active Substance: VANCOMYCIN
     Indication: DERMO-HYPODERMITIS
     Route: 042
     Dates: start: 20191215, end: 20191217
  8. NEFOPAM [Concomitant]
     Active Substance: NEFOPAM
     Route: 042
  9. SERESTA [Concomitant]
     Active Substance: OXAZEPAM
     Dosage: 10 MG
     Route: 048
  10. LAROXYL [Concomitant]
     Active Substance: AMITRIPTYLINE HYDROCHLORIDE
     Route: 048
     Dates: start: 20191215
  11. PARACETAMOL [Concomitant]
     Active Substance: ACETAMINOPHEN
     Route: 048
  12. MOVICOL [Concomitant]
     Active Substance: POLYETHYLENE GLYCOL 3350\POTASSIUM CHLORIDE\SODIUM BICARBONATE\SODIUM CHLORIDE
     Route: 048
  13. OXYCODONE/OXYCODONE HYDROCHLORIDE/OXYCODONE PECTINATE/OXYCODONE TEREPHTHALATE [Concomitant]
     Active Substance: OXYCODONE
     Route: 048
  14. VOGALENE [Concomitant]
     Active Substance: METOPIMAZINE
     Route: 048
  15. PRIMPERAN [Concomitant]
     Active Substance: METOCLOPRAMIDE HYDROCHLORIDE
     Route: 042
  16. MORPHINE [Concomitant]
     Active Substance: MORPHINE
     Route: 042
     Dates: start: 20191214
  17. DROPERIDOL/DROPERIDOL LACTATE [Concomitant]
     Active Substance: DROPERIDOL
     Route: 042

REACTIONS (2)
  - Hepatic enzyme increased [Recovered/Resolved]
  - Acute kidney injury [Recovered/Resolved]

NARRATIVE: CASE EVENT DATE: 20191217
